FAERS Safety Report 7373711-6 (Version None)
Quarter: 2011Q1

REPORT INFORMATION
  Report Type: 
  Country: None (occurrence: None)
  Receive Date: 20110325
  Receipt Date: 20100830
  Transmission Date: 20110831
  Serious: No
  Sender: FDA-Public Use
  Company Number: US-MYLANLABS-2010S1015786

PATIENT
  Age: 87 Year
  Sex: Male

DRUGS (6)
  1. SERTRALINE HYDROCHLORIDE [Suspect]
     Indication: POST-TRAUMATIC STRESS DISORDER
     Route: 065
     Dates: start: 19980101
  2. LORAZEPAM [Concomitant]
     Indication: NIGHTMARE
     Route: 065
  3. BUPROPION HYDROCHLORIDE [Concomitant]
     Indication: NIGHTMARE
     Route: 065
  4. LORAZEPAM [Concomitant]
     Indication: POST-TRAUMATIC STRESS DISORDER
     Route: 065
  5. SERTRALINE HYDROCHLORIDE [Suspect]
     Indication: NIGHTMARE
     Route: 065
     Dates: start: 19980101
  6. BUPROPION HYDROCHLORIDE [Concomitant]
     Indication: POST-TRAUMATIC STRESS DISORDER
     Route: 065

REACTIONS (1)
  - PARASOMNIA [None]
